FAERS Safety Report 13763877 (Version 1)
Quarter: 2017Q3

REPORT INFORMATION
  Report Type: Spontaneous
  Country: CY (occurrence: CY)
  Receive Date: 20170718
  Receipt Date: 20170718
  Transmission Date: 20171127
  Serious: Yes (Hospitalization, Other)
  Sender: FDA-Public Use
  Company Number: CY-CELLTRION HEALTHCARE JAPAN K.K.-2017CY009370

PATIENT

DRUGS (1)
  1. INFLECTRA [Suspect]
     Active Substance: INFLIXIMAB-DYYB
     Indication: BEHCET^S SYNDROME
     Dosage: UNK
     Route: 042
     Dates: start: 201701, end: 20170706

REACTIONS (6)
  - Dyspnoea [Recovered/Resolved]
  - Respiratory tract infection [Unknown]
  - Product use in unapproved indication [Unknown]
  - Anaphylactic shock [Recovered/Resolved]
  - Rash [Recovered/Resolved]
  - Pyrexia [Unknown]

NARRATIVE: CASE EVENT DATE: 201701
